FAERS Safety Report 6749699-5 (Version None)
Quarter: 2010Q2

REPORT INFORMATION
  Report Type: 
  Country: None (occurrence: None)
  Receive Date: 20100601
  Receipt Date: 20100520
  Transmission Date: 20101027
  Serious: Yes (Hospitalization)
  Sender: FDA-Public Use
  Company Number: US-ASTRAZENECA-2010SE23366

PATIENT
  Age: 86 Year
  Sex: Female

DRUGS (4)
  1. TOPROL-XL [Suspect]
     Dosage: DAILY
     Route: 048
  2. BENICAR [Concomitant]
  3. ACIPHEX [Concomitant]
  4. EYEDROPS [Concomitant]
     Indication: GLAUCOMA

REACTIONS (5)
  - ASTHENIA [None]
  - DIZZINESS [None]
  - HYPERTENSION [None]
  - NAUSEA [None]
  - VOMITING [None]
